FAERS Safety Report 5505286-8 (Version None)
Quarter: 2007Q4

REPORT INFORMATION
  Report Type: 
  Country: None (occurrence: None)
  Receive Date: 20071102
  Receipt Date: 20071029
  Transmission Date: 20080405
  Serious: Yes (Hospitalization, Disabling)
  Sender: FDA-Public Use
  Company Number: JP-AVENTIS-200712440JP

PATIENT
  Age: 44 Year
  Sex: Male
  Weight: 57.7 kg

DRUGS (7)
  1. LANTUS [Suspect]
     Dosage: DOSE: 12 UNITS
     Route: 058
  2. NOVORAPID [Concomitant]
     Dosage: DOSE: 8-12-10 UNITS
     Route: 058
  3. MICARDIS [Concomitant]
     Indication: HYPERTENSION
     Route: 048
  4. PRAVASTATIN SODIUM [Concomitant]
     Route: 048
     Dates: start: 20060421
  5. AMLODIPINE [Concomitant]
     Indication: HYPERTENSION
     Route: 048
  6. ZYLORIC [Concomitant]
  7. LASIX [Concomitant]

REACTIONS (3)
  - DEMENTIA [None]
  - HYPOGLYCAEMIC COMA [None]
  - SPEECH DISORDER [None]
